FAERS Safety Report 11486242 (Version 1)
Quarter: 2015Q3

REPORT INFORMATION
  Report Type: Spontaneous
  Country: IT (occurrence: IT)
  Receive Date: 20150909
  Receipt Date: 20150909
  Transmission Date: 20151125
  Serious: Yes (Life-Threatening, Other)
  Sender: FDA-Public Use
  Company Number: IT-BRISTOL-MYERS SQUIBB COMPANY-BMS-2015-059194

PATIENT
  Age: 78 Year
  Sex: Female
  Weight: 40 kg

DRUGS (3)
  1. TRIATEC                            /00116401/ [Concomitant]
     Active Substance: HYDROCHLOROTHIAZIDE
     Indication: PRODUCT USED FOR UNKNOWN INDICATION
     Dosage: 2 UNIT, UNK
     Route: 048
  2. CARDICOR [Concomitant]
     Active Substance: BISOPROLOL
     Indication: PRODUCT USED FOR UNKNOWN INDICATION
     Dosage: 2 UNIT, UNK
     Route: 048
  3. COUMADIN [Suspect]
     Active Substance: WARFARIN SODIUM
     Indication: ATRIAL FIBRILLATION
     Dosage: 5 MG, PRN
     Route: 048
     Dates: start: 20130101, end: 20150826

REACTIONS (9)
  - Overdose [Recovering/Resolving]
  - Melaena [Recovering/Resolving]
  - Abdominal pain [Recovering/Resolving]
  - Hypocoagulable state [Recovering/Resolving]
  - International normalised ratio increased [Recovering/Resolving]
  - Abdominal wall haematoma [Recovering/Resolving]
  - Asthenia [Recovering/Resolving]
  - Transfusion [Unknown]
  - Anaemia [Recovering/Resolving]

NARRATIVE: CASE EVENT DATE: 20150827
